FAERS Safety Report 7766282-3 (Version None)
Quarter: 2011Q3

REPORT INFORMATION
  Report Type: 
  Country: None (occurrence: None)
  Receive Date: 20110922
  Receipt Date: 20110909
  Transmission Date: 20111222
  Serious: Yes (Hospitalization, Other)
  Sender: FDA-Public Use
  Company Number: ES-BIOGENIDEC-2011BI034628

PATIENT
  Age: 51 Year
  Sex: Female

DRUGS (4)
  1. ALFUZOSINE [Concomitant]
     Indication: BLADDER DYSFUNCTION
     Route: 048
     Dates: start: 20080603, end: 20110907
  2. BACLOFEN [Concomitant]
     Indication: MUSCLE SPASTICITY
     Route: 048
     Dates: start: 20110615, end: 20110907
  3. ESCITALOPRAM [Concomitant]
     Indication: DEPRESSION
     Route: 048
     Dates: start: 20050215
  4. TYSABRI [Suspect]
     Indication: MULTIPLE SCLEROSIS
     Route: 042
     Dates: start: 20090224, end: 20110811

REACTIONS (1)
  - HEPATITIS [None]
